FAERS Safety Report 19861196 (Version 1)
Quarter: 2021Q3

REPORT INFORMATION
  Report Type: Report from Study
  Country: US (occurrence: US)
  Receive Date: 20210920
  Receipt Date: 20210920
  Transmission Date: 20211014
  Serious: Yes (Hospitalization)
  Sender: FDA-Public Use
  Company Number: US-PFIZER INC-202101177732

PATIENT
  Age: 41 Year
  Sex: Female
  Weight: 75.66 kg

DRUGS (21)
  1. PHENAZOPYRIDINE. [Concomitant]
     Active Substance: PHENAZOPYRIDINE
     Dosage: UNK (MG)
     Dates: start: 20210124
  2. SIMETHICONE (DIMETHICONE) [Concomitant]
     Active Substance: DIMETHICONE
     Dosage: UNK
     Dates: start: 20210122, end: 20210209
  3. VALACYCLOVIR [Concomitant]
     Active Substance: VALACYCLOVIR HYDROCHLORIDE
     Dosage: UNK
     Dates: start: 20200610, end: 20210209
  4. MELATONIN [Concomitant]
     Active Substance: MELATONIN
     Dosage: UNK (MG)
     Dates: start: 20200105
  5. OFLOXACIN. [Concomitant]
     Active Substance: OFLOXACIN
     Dosage: UNK (SOLUTION)
     Dates: start: 20210203, end: 20210209
  6. SILVER SULFADIAZINE. [Concomitant]
     Active Substance: SILVER SULFADIAZINE
     Dosage: UNK
     Dates: start: 20210124, end: 20210209
  7. INCB039110 [Suspect]
     Active Substance: ITACITINIB
     Indication: CHRONIC GRAFT VERSUS HOST DISEASE
     Dosage: 300 MG, 2X/DAY
     Route: 048
     Dates: start: 20210127, end: 20210209
  8. FOLIC ACID. [Concomitant]
     Active Substance: FOLIC ACID
     Dosage: UNK (MG)
     Dates: start: 20200610
  9. SODIUM FLUORIDE. [Concomitant]
     Active Substance: SODIUM FLUORIDE
     Dosage: UNK
     Dates: start: 20210205, end: 20210209
  10. TRAMADOL. [Concomitant]
     Active Substance: TRAMADOL
     Dosage: UNK (MG)
     Dates: start: 20210208, end: 20210209
  11. URSODIOL. [Concomitant]
     Active Substance: URSODIOL
     Dosage: UNK (MG)
     Dates: start: 20200601
  12. NORVASC [Concomitant]
     Active Substance: AMLODIPINE BESYLATE
     Dosage: UNK
     Dates: start: 20210208, end: 20210209
  13. METHYLPREDNISOLONE. [Suspect]
     Active Substance: METHYLPREDNISOLONE
     Indication: CHRONIC GRAFT VERSUS HOST DISEASE
     Dosage: 32 MG, 1X/DAY
     Route: 048
     Dates: start: 20210125
  14. ATOVAQUONE. [Concomitant]
     Active Substance: ATOVAQUONE
     Dosage: UNK (MG)
     Dates: start: 20191227
  15. CLOBETASOL [Concomitant]
     Active Substance: CLOBETASOL
     Dosage: UNK
     Dates: start: 20210122, end: 20210209
  16. TACROLIMUS. [Concomitant]
     Active Substance: TACROLIMUS
     Dosage: UNK (MG)
     Dates: start: 20201020
  17. OXYCODONE [Concomitant]
     Active Substance: OXYCODONE
     Dosage: UNK (MG)
     Dates: start: 20200308
  18. PANTOPRAZOLE [Concomitant]
     Active Substance: PANTOPRAZOLE
     Dosage: UNK (MG)
     Dates: start: 20200610
  19. HYDROCORTISONE 1% IN ABSORBASE [Concomitant]
     Active Substance: HYDROCORTISONE
     Dosage: UNK
     Dates: start: 20210124, end: 20210209
  20. ISAVUCONAZONIUM SULFATE [Concomitant]
     Active Substance: ISAVUCONAZONIUM SULFATE
     Dosage: UNK (MG)
     Dates: start: 20210111, end: 20210209
  21. LORATADINE. [Concomitant]
     Active Substance: LORATADINE
     Dosage: UNK (MG)
     Dates: start: 20200603

REACTIONS (1)
  - Failure to thrive [Recovered/Resolved]

NARRATIVE: CASE EVENT DATE: 20210209
